FAERS Safety Report 4770950-5 (Version None)
Quarter: 2005Q3

REPORT INFORMATION
  Report Type: 
  Country: None (occurrence: None)
  Receive Date: 20050914
  Receipt Date: 20050825
  Transmission Date: 20060218
  Serious: Yes (Hospitalization, Congenital Anomaly)
  Sender: FDA-Public Use
  Company Number: FR_050806996

PATIENT
  Age: 1 Day
  Sex: Female
  Weight: 3 kg

DRUGS (2)
  1. PROZAC [Suspect]
  2. SUBUTEX [Concomitant]

REACTIONS (22)
  - AMIMIA [None]
  - APNOEA [None]
  - CLEFT UVULA [None]
  - CONGENITAL ANOMALY [None]
  - CONVULSION NEONATAL [None]
  - DRUG EXPOSURE DURING PREGNANCY [None]
  - DYSPHAGIA [None]
  - EYE DISORDER [None]
  - HIGH ARCHED PALATE [None]
  - HYPERTELORISM OF ORBIT [None]
  - HYPOTONIA NEONATAL [None]
  - IIIRD NERVE PARALYSIS [None]
  - MOEBIUS II SYNDROME [None]
  - NEONATAL APNOEIC ATTACK [None]
  - NEONATAL DISORDER [None]
  - NEONATAL INFECTION [None]
  - NEONATAL RESPIRATORY DISTRESS SYNDROME [None]
  - PIERRE ROBIN SYNDROME [None]
  - RETROGNATHIA [None]
  - STRABISMUS [None]
  - TALIPES [None]
  - UNEVALUABLE EVENT [None]
